FAERS Safety Report 24705804 (Version 2)
Quarter: 2025Q1

REPORT INFORMATION
  Report Type: Report from Study
  Country: CA (occurrence: CA)
  Receive Date: 20241206
  Receipt Date: 20250220
  Transmission Date: 20250408
  Serious: Yes (Hospitalization)
  Sender: SAMSUNG BIOEPIS
  Company Number: CA-SAMSUNG BIOEPIS-SB-2024-36533

PATIENT
  Age: 43 Year
  Sex: Female
  Weight: 96 kg

DRUGS (1)
  1. RENFLEXIS [Suspect]
     Active Substance: INFLIXIMAB-ABDA
     Indication: Rheumatoid arthritis
     Route: 042

REACTIONS (2)
  - Spinal cord neoplasm [Unknown]
  - Procedural pain [Not Recovered/Not Resolved]
